FAERS Safety Report 19475087 (Version 2)
Quarter: 2022Q3

REPORT INFORMATION
  Report Type: Spontaneous
  Country: CA (occurrence: CA)
  Receive Date: 20210630
  Receipt Date: 20220906
  Transmission Date: 20221027
  Serious: Yes (Death, Hospitalization, Other)
  Sender: FDA-Public Use
  Company Number: CA-ASTRAZENECA-2020SE87362

PATIENT

DRUGS (11)
  1. ZOLADEX [Suspect]
     Active Substance: GOSERELIN ACETATE
     Indication: Product used for unknown indication
     Dosage: UNK
     Route: 058
  2. ZOLADEX [Suspect]
     Active Substance: GOSERELIN ACETATE
     Indication: Product used for unknown indication
     Dosage: UNK
     Route: 065
  3. ANASTROZOLE [Suspect]
     Active Substance: ANASTROZOLE
     Indication: Breast cancer
     Dosage: UNK
     Route: 048
  4. TAMOXIFEN CITRATE [Suspect]
     Active Substance: TAMOXIFEN CITRATE
     Indication: Product used for unknown indication
     Dosage: UNK
     Route: 048
  5. CAPECITABINE [Suspect]
     Active Substance: CAPECITABINE
     Indication: Product used for unknown indication
     Dosage: UNK
     Route: 065
  6. AFINITOR [Suspect]
     Active Substance: EVEROLIMUS
     Indication: Breast cancer
     Dosage: 5 MILLIGRAM UNKNOWN
     Route: 048
     Dates: start: 20191103
  7. AFINITOR [Suspect]
     Active Substance: EVEROLIMUS
     Dosage: 10 MILLIGRAM UNKNOWN
     Route: 048
  8. AFINITOR [Suspect]
     Active Substance: EVEROLIMUS
     Dosage: 10 MILLIGRAM UNKNOWN
     Route: 048
  9. LETROZOLE [Suspect]
     Active Substance: LETROZOLE
     Indication: Breast cancer
     Dosage: UNK
     Route: 065
  10. TAMOXIFEN [Suspect]
     Active Substance: TAMOXIFEN
     Indication: Product used for unknown indication
     Route: 048
  11. EVEROLIMUS [Suspect]
     Active Substance: EVEROLIMUS
     Indication: Breast cancer
     Dosage: UNK
     Route: 065

REACTIONS (8)
  - Death [Fatal]
  - Malignant neoplasm progression [Fatal]
  - Breast cancer metastatic [Fatal]
  - Ascites [Fatal]
  - Blood bilirubin increased [Fatal]
  - Platelet count decreased [Fatal]
  - Malaise [Fatal]
  - Drug ineffective [Fatal]
